FAERS Safety Report 4717806-1 (Version None)
Quarter: 2005Q3

REPORT INFORMATION
  Report Type: 
  Country: None (occurrence: None)
  Receive Date: 20050715
  Receipt Date: 20041123
  Transmission Date: 20060218
  Serious: Yes (Life-Threatening, Hospitalization)
  Sender: FDA-Public Use
  Company Number: 2004-00844

PATIENT
  Age: 60 Year
  Sex: Male

DRUGS (8)
  1. INTEGRILIN [Suspect]
     Dosage: SEE IMAGE
  2. INTEGRILIN [Suspect]
     Dosage: SEE IMAGE
     Dates: start: 20041123
  3. . [Concomitant]
  4. PLAVIX [Concomitant]
  5. HEPARIN [Concomitant]
  6. ASPIRIN [Concomitant]
  7. LIPITOR [Concomitant]
  8. CALCIUM CHANNEL BLOCKERS [Concomitant]

REACTIONS (2)
  - BLOOD PRESSURE DECREASED [None]
  - RETROPERITONEAL HAEMORRHAGE [None]
